FAERS Safety Report 4640544-0 (Version None)
Quarter: 2005Q1

REPORT INFORMATION
  Report Type: 
  Country: None (occurrence: None)
  Receive Date: 20050328
  Receipt Date: 20050201
  Transmission Date: 20050727
  Serious: No
  Sender: FDA-Public Use
  Company Number: USA050289700

PATIENT
  Age: 10 Year
  Sex: Male
  Weight: 37 kg

DRUGS (1)
  1. STRATTERA [Suspect]
     Dosage: 40 MG DAY
     Dates: start: 20050129

REACTIONS (7)
  - DYSPHAGIA [None]
  - FATIGUE [None]
  - HEADACHE [None]
  - INFLUENZA LIKE ILLNESS [None]
  - PHARYNGOLARYNGEAL PAIN [None]
  - PYREXIA [None]
  - SOMNOLENCE [None]
